FAERS Safety Report 22068159 (Version 2)
Quarter: 2023Q2

REPORT INFORMATION
  Report Type: Report from Study
  Country: US (occurrence: US)
  Receive Date: 20230307
  Receipt Date: 20230621
  Transmission Date: 20230721
  Serious: Yes (Other)
  Sender: FDA-Public Use
  Company Number: US-ABBVIE-4329042

PATIENT
  Age: 60 Year
  Sex: Female
  Weight: 80 kg

DRUGS (6)
  1. HUMIRA [Suspect]
     Active Substance: ADALIMUMAB
     Indication: Psoriasis
     Dosage: STRENGTH: 40 MG CITRATE FREE
     Route: 058
     Dates: start: 20221216
  2. HUMIRA [Suspect]
     Active Substance: ADALIMUMAB
     Indication: Psoriatic arthropathy
     Dosage: STRENGTH: 40 MG CITRATE FREE
     Route: 058
     Dates: start: 20230210, end: 202302
  3. HUMIRA [Suspect]
     Active Substance: ADALIMUMAB
     Dosage: STRENGTH: 40 MG CITRATE FREE
     Route: 058
     Dates: start: 20230223
  4. Xanax pill [Concomitant]
     Indication: Product used for unknown indication
     Dosage: PILLS?FREQUENCY TEXT: PER NIGHT?START DATE TEXT: YEARS AGO
  5. Trazodone pill [Concomitant]
     Indication: Product used for unknown indication
     Dosage: PILLS?FREQUENCY TEXT: PER NIGHT?START DATE TEXT: YEARS AGO
  6. ASPIRIN [Concomitant]
     Active Substance: ASPIRIN
     Indication: Product used for unknown indication
     Dosage: FREQUENCY TEXT: PER NIGHT? START DATE TEXT: YEARS AGO

REACTIONS (4)
  - Medical procedure [Unknown]
  - Haemorrhage [Unknown]
  - Respiratory disorder [Unknown]
  - Bleeding time prolonged [Recovered/Resolved]

NARRATIVE: CASE EVENT DATE: 20230223
